FAERS Safety Report 18373591 (Version 1)
Quarter: 2020Q4

REPORT INFORMATION
  Report Type: Spontaneous
  Country: FR (occurrence: FR)
  Receive Date: 20201012
  Receipt Date: 20201012
  Transmission Date: 20210114
  Serious: Yes (Hospitalization, Other)
  Sender: FDA-Public Use
  Company Number: FR-CORDEN PHARMA LATINA S.P.A.-FR-2020COR000022

PATIENT
  Age: 66 Year
  Sex: Male

DRUGS (2)
  1. ETOPOSIDE. [Suspect]
     Active Substance: ETOPOSIDE
     Indication: ENTEROPATHY-ASSOCIATED T-CELL LYMPHOMA
     Dosage: 360 MG, SINGLE
     Route: 042
  2. METHOTREXATE. [Suspect]
     Active Substance: METHOTREXATE
     Indication: ENTEROPATHY-ASSOCIATED T-CELL LYMPHOMA
     Dosage: 5400 MG, SINGLE
     Route: 065

REACTIONS (1)
  - Anaphylactic shock [Recovered/Resolved]
